FAERS Safety Report 18241848 (Version 1)
Quarter: 2020Q3

REPORT INFORMATION
  Report Type: Spontaneous
  Country: US (occurrence: US)
  Receive Date: 20200905
  Receipt Date: 20200905
  Transmission Date: 20201103
  Serious: Yes (Hospitalization)
  Sender: FDA-Public Use
  Company Number: None

PATIENT
  Age: 35 Month
  Sex: Male
  Weight: 13.4 kg

DRUGS (5)
  1. DOXORUBICIN HYDROCHLORIDE. [Suspect]
     Active Substance: DOXORUBICIN HYDROCHLORIDE
     Dates: end: 20200821
  2. VINCRISTINE SULFATE. [Suspect]
     Active Substance: VINCRISTINE SULFATE
     Dates: end: 20200826
  3. ZINECARD [Suspect]
     Active Substance: DEXRAZOXANE HYDROCHLORIDE
     Dates: end: 20200821
  4. CISPLATIN. [Suspect]
     Active Substance: CISPLATIN
     Dates: end: 20200820
  5. 5?FLUOROURACIL (5?FU) [Suspect]
     Active Substance: FLUOROURACIL
     Dates: end: 20200820

REACTIONS (5)
  - Platelet transfusion [None]
  - Pyrexia [None]
  - Neutropenia [None]
  - Thrombocytopenia [None]
  - Hypophagia [None]

NARRATIVE: CASE EVENT DATE: 20200830
